FAERS Safety Report 9509880 (Version 2)
Quarter: 2013Q3

REPORT INFORMATION
  Report Type: Spontaneous
  Country: US (occurrence: US)
  Receive Date: 20130909
  Receipt Date: 20130909
  Transmission Date: 20140515
  Serious: No
  Sender: FDA-Public Use
  Company Number: US-BRISTOL-MYERS SQUIBB COMPANY-16544835

PATIENT
  Sex: Male

DRUGS (1)
  1. ABILIFY [Suspect]
     Indication: DEPRESSION
     Dosage: 3 MG(1ST WEEK),?5 MG(2ND WEEK).

REACTIONS (4)
  - Anxiety [Unknown]
  - Restlessness [Unknown]
  - Libido decreased [Unknown]
  - Insomnia [Unknown]
